FAERS Safety Report 16591321 (Version 2)
Quarter: 2019Q3

REPORT INFORMATION
  Report Type: Spontaneous
  Country: US (occurrence: US)
  Receive Date: 20190718
  Receipt Date: 20190926
  Transmission Date: 20191004
  Serious: Yes (Hospitalization)
  Sender: FDA-Public Use
  Company Number: US-PFIZER INC-2019301210

PATIENT
  Age: 66 Year
  Sex: Male
  Weight: 68.95 kg

DRUGS (2)
  1. CHANTIX [Suspect]
     Active Substance: VARENICLINE TARTRATE
     Indication: SMOKING CESSATION THERAPY
     Dosage: UNK
     Dates: start: 201902
  2. CHANTIX [Suspect]
     Active Substance: VARENICLINE TARTRATE
     Dosage: 1 MG X2
     Dates: start: 20190810

REACTIONS (4)
  - Peripheral swelling [Unknown]
  - Blood glucose abnormal [Unknown]
  - Cardiac failure congestive [Unknown]
  - Fluid retention [Unknown]
